FAERS Safety Report 24758818 (Version 1)
Quarter: 2024Q4

REPORT INFORMATION
  Report Type: Other
  Country: GB (occurrence: GB)
  Receive Date: 20241220
  Receipt Date: 20241220
  Transmission Date: 20250115
  Serious: Yes (Death)
  Sender: B BRAUN
  Company Number: GB-B.Braun Medical Inc.-2167489

PATIENT
  Age: 22 Year
  Sex: Male

DRUGS (8)
  1. LIDOCAINE HYDROCHLORIDE [Suspect]
     Active Substance: LIDOCAINE HYDROCHLORIDE
     Indication: Anxiety
  2. KETAMINE [Suspect]
     Active Substance: KETAMINE
  3. 2C-I [Suspect]
     Active Substance: 2C-I
  4. 5-METHOXY-N,N-DIISOPROPYLTRYPTAMINE [Suspect]
     Active Substance: 5-METHOXY-N,N-DIISOPROPYLTRYPTAMINE
  5. 25C-NBOME [Suspect]
     Active Substance: 25C-NBOME
  6. DOI [Suspect]
     Active Substance: DOI
  7. 25I-NBOME [Suspect]
     Active Substance: 25I-NBOME
  8. ALCOHOL [Suspect]
     Active Substance: ALCOHOL

REACTIONS (2)
  - Abnormal behaviour [Fatal]
  - Drug abuse [Fatal]
